FAERS Safety Report 5198945-0 (Version None)
Quarter: 2007Q1

REPORT INFORMATION
  Report Type: 
  Country: None (occurrence: None)
  Receive Date: 20070104
  Receipt Date: 20051012
  Transmission Date: 20070707
  Serious: Yes (Hospitalization)
  Sender: FDA-Public Use
  Company Number: US-ROCHE-421117

PATIENT
  Age: 54 Year
  Sex: Male
  Weight: 65.8 kg

DRUGS (3)
  1. PEGASYS [Suspect]
     Dosage: DOSAGE REGIMEN REPORTED AS WEEKLY
     Route: 058
     Dates: start: 20041215, end: 20051015
  2. COPEGUS [Suspect]
     Route: 048
     Dates: start: 20041215, end: 20051015
  3. METHADONE HCL [Concomitant]
     Route: 048

REACTIONS (5)
  - ANAEMIA [None]
  - BLOOD CREATININE INCREASED [None]
  - BLOOD UREA INCREASED [None]
  - CARDIAC FAILURE CONGESTIVE [None]
  - PYREXIA [None]
